FAERS Safety Report 6672123-8 (Version None)
Quarter: 2010Q2

REPORT INFORMATION
  Report Type: 
  Country: None (occurrence: None)
  Receive Date: 20100407
  Receipt Date: 20100407
  Transmission Date: 20101027
  Serious: Yes (Other)
  Sender: FDA-Public Use
  Company Number: None

PATIENT
  Sex: Female
  Weight: 55.5 kg

DRUGS (2)
  1. LANSOPRAZOLE [Suspect]
     Indication: GASTROOESOPHAGEAL REFLUX DISEASE
     Dosage: 1 30 MGS CAP QD 1 QD MOUTH
     Route: 048
     Dates: start: 20100325
  2. LANSOPRAZOLE [Suspect]
     Indication: OROPHARYNGEAL PAIN
     Dosage: 1 30 MGS CAP QD 1 QD MOUTH
     Route: 048
     Dates: start: 20100325

REACTIONS (3)
  - DISORIENTATION [None]
  - MUSCULOSKELETAL PAIN [None]
  - PRODUCT SUBSTITUTION ISSUE [None]
